FAERS Safety Report 5852994-5 (Version None)
Quarter: 2008Q3

REPORT INFORMATION
  Report Type: 
  Country: None (occurrence: None)
  Receive Date: 20080821
  Receipt Date: 20080812
  Transmission Date: 20090109
  Serious: No
  Sender: FDA-Public Use
  Company Number: BE-ROCHE-562693

PATIENT
  Age: 32 Year
  Sex: Female

DRUGS (2)
  1. ISOTRETINOIN [Suspect]
     Indication: ACNE
     Dosage: DOSAGE REGIMEN: DAILY.
     Route: 048
     Dates: end: 20080505
  2. NUVARING [Concomitant]
     Indication: CONTRACEPTION
     Route: 067

REACTIONS (1)
  - ABORTION INDUCED [None]
